FAERS Safety Report 5750179-4 (Version None)
Quarter: 2008Q2

REPORT INFORMATION
  Report Type: 
  Country: None (occurrence: None)
  Receive Date: 20080527
  Receipt Date: 20080514
  Transmission Date: 20081010
  Serious: Yes (Hospitalization, Other)
  Sender: FDA-Public Use
  Company Number: US-ELI_LILLY_AND_COMPANY-US200803005997

PATIENT
  Sex: Female

DRUGS (4)
  1. FORTEO [Suspect]
     Dates: start: 20070801, end: 20071101
  2. TOPROL-XL                          /00376903/ [Concomitant]
  3. ACIPHEX [Concomitant]
  4. VITAMIN CAP [Concomitant]

REACTIONS (2)
  - CHONDROSARCOMA [None]
  - SYNCOPE [None]
